FAERS Safety Report 7929980 (Version 17)
Quarter: 2013Q3

REPORT INFORMATION
  Report Type: Spontaneous
  Country: US (occurrence: US)
  Receive Date: 20110504
  Receipt Date: 20130814
  Transmission Date: 20140515
  Serious: Yes (Other)
  Sender: FDA-Public Use
  Company Number: PHEH2011US00477

PATIENT
  Age: 49 Year
  Sex: Female

DRUGS (15)
  1. ZOMETA [Suspect]
     Indication: BREAST CANCER METASTATIC
     Dosage: 4 MG, QMO
     Dates: start: 20020307, end: 20091130
  2. ZOMETA [Suspect]
     Indication: METASTASES TO BONE
  3. ZOMETA [Suspect]
     Indication: METASTASES TO SPINE
  4. ZOMETA [Suspect]
     Indication: CHRONIC MYELOID LEUKAEMIA
  5. AREDIA [Suspect]
  6. GLIVEC [Concomitant]
  7. FEMARA [Concomitant]
  8. WARFARIN [Concomitant]
  9. VENLAFAXINE [Concomitant]
  10. LORAZEPAM [Concomitant]
  11. REGLAN [Concomitant]
  12. COMPAZINE [Concomitant]
  13. VICODIN [Concomitant]
  14. PREVACID [Concomitant]
  15. ZOLADEX IMPLANT [Concomitant]

REACTIONS (96)
  - Osteonecrosis of jaw [Unknown]
  - Pain [Unknown]
  - Infection [Unknown]
  - Deformity [Unknown]
  - Pain in jaw [Unknown]
  - Oedema mucosal [Unknown]
  - Injury [Unknown]
  - Dental caries [Unknown]
  - Exposed bone in jaw [Unknown]
  - Gingival pain [Unknown]
  - Tooth infection [Unknown]
  - Swelling face [Unknown]
  - Bone swelling [Unknown]
  - Emotional distress [Unknown]
  - Anxiety [Unknown]
  - Osteorrhagia [Unknown]
  - Tooth abscess [Unknown]
  - Wound [Unknown]
  - Dysgeusia [Unknown]
  - Oral discharge [Unknown]
  - Parosmia [Unknown]
  - Rib fracture [Unknown]
  - Osteosclerosis [Unknown]
  - Pulmonary mass [Unknown]
  - Chronic myeloid leukaemia [Unknown]
  - Tenderness [Unknown]
  - Rhinorrhoea [Unknown]
  - Anaemia [Unknown]
  - Upper respiratory tract infection [Unknown]
  - Neoplasm progression [Unknown]
  - Malignant neoplasm progression [Unknown]
  - Metastases to lymph nodes [Unknown]
  - Tooth loss [Unknown]
  - Sensitivity of teeth [Unknown]
  - Toothache [Unknown]
  - Femur fracture [Unknown]
  - Fall [Unknown]
  - Rhinitis [Unknown]
  - Gastrooesophageal reflux disease [Unknown]
  - Sinusitis [Unknown]
  - Osteitis [Unknown]
  - Gingival erosion [Unknown]
  - Fistula [Unknown]
  - Pneumonia [Unknown]
  - Conjunctival haemorrhage [Unknown]
  - Pulmonary embolism [Unknown]
  - Respiratory tract congestion [Unknown]
  - Osteolysis [Unknown]
  - Inflammation [Unknown]
  - Discomfort [Unknown]
  - Musculoskeletal chest pain [Unknown]
  - Depression [Unknown]
  - Lung infiltration [Unknown]
  - Pathological fracture [Unknown]
  - Leukocytosis [Unknown]
  - Gingival bleeding [Unknown]
  - Stress fracture [Unknown]
  - Breast discharge [Unknown]
  - Hepatic steatosis [Unknown]
  - Pulmonary fibrosis [Unknown]
  - Intervertebral disc degeneration [Unknown]
  - Kidney fibrosis [Unknown]
  - Atelectasis [Unknown]
  - Skin mass [Unknown]
  - Dermal cyst [Unknown]
  - Osteoarthritis [Unknown]
  - Sinus tachycardia [Unknown]
  - Costochondritis [Unknown]
  - Osteonecrosis [Unknown]
  - Periorbital oedema [Unknown]
  - Skin lesion [Unknown]
  - Oedema peripheral [Unknown]
  - Sinus polyp [Unknown]
  - Nasal septum deviation [Unknown]
  - Osteoradionecrosis [Unknown]
  - Atypical femur fracture [Unknown]
  - Overdose [Unknown]
  - Hip fracture [Unknown]
  - Epistaxis [Unknown]
  - Gait disturbance [Unknown]
  - Tachycardia [Unknown]
  - Arthralgia [Unknown]
  - Headache [Unknown]
  - Hyponatraemia [Unknown]
  - Nausea [Unknown]
  - Insomnia [Unknown]
  - Back pain [Unknown]
  - Diarrhoea [Unknown]
  - Pyrexia [Unknown]
  - Weight increased [Unknown]
  - Dyspnoea [Unknown]
  - Vomiting [Unknown]
  - Sinus headache [Unknown]
  - Oropharyngeal pain [Unknown]
  - Chest discomfort [Unknown]
  - Muscle spasms [Unknown]
